FAERS Safety Report 14881630 (Version 2)
Quarter: 2019Q1

REPORT INFORMATION
  Report Type: Spontaneous
  Country: CA (occurrence: CA)
  Receive Date: 20180511
  Receipt Date: 20190110
  Transmission Date: 20190417
  Serious: Yes (Life-Threatening, Hospitalization, Disabling)
  Sender: FDA-Public Use
  Company Number: CA-OTSUKA-2018_011968

PATIENT
  Sex: Female

DRUGS (3)
  1. ABILIFY [Suspect]
     Active Substance: ARIPIPRAZOLE
     Dosage: 5 MG, UNK
     Route: 065
  2. ABILIFY MAINTENA [Suspect]
     Active Substance: ARIPIPRAZOLE
     Indication: PRODUCT USED FOR UNKNOWN INDICATION
     Dosage: UNK
     Route: 065
  3. ABILIFY [Suspect]
     Active Substance: ARIPIPRAZOLE
     Indication: PRODUCT USED FOR UNKNOWN INDICATION
     Dosage: 2 MG, QD
     Route: 065
     Dates: start: 2013, end: 2017

REACTIONS (10)
  - Fatigue [Unknown]
  - Abnormal dreams [Unknown]
  - Headache [Unknown]
  - Muscle contracture [Unknown]
  - Rash erythematous [Unknown]
  - Therapy cessation [Unknown]
  - Gait disturbance [Unknown]
  - Sleep disorder [Unknown]
  - Arthralgia [Unknown]
  - Vomiting [Unknown]
